FAERS Safety Report 9607358 (Version 2)
Quarter: 2014Q2

REPORT INFORMATION
  Report Type: Spontaneous
  Country: US (occurrence: None)
  Receive Date: 20131004
  Receipt Date: 20140408
  Transmission Date: 20141212
  Serious: Yes (Hospitalization)
  Sender: FDA-Public Use
  Company Number: 151619

PATIENT
  Age: 70 Year
  Sex: Female
  Weight: 57 kg

DRUGS (1)
  1. LEUCOVORIN CALCIUM [Suspect]
     Indication: COLORECTAL CANCER METASTATIC
     Dosage: 400MG/M2 ON AY ONE EVERY 14 DAYS
     Dates: start: 20130604

REACTIONS (13)
  - Pleural effusion [None]
  - Metastatic neoplasm [None]
  - Pleural disorder [None]
  - Nephrotic syndrome [None]
  - Weight decreased [None]
  - Haemoglobin decreased [None]
  - Blood glucose increased [None]
  - Blood lactate dehydrogenase increased [None]
  - Gamma-glutamyltransferase increased [None]
  - Brain natriuretic peptide increased [None]
  - Malignant pleural effusion [None]
  - Blood potassium decreased [None]
  - Atrial fibrillation [None]
